FAERS Safety Report 4432862-6 (Version None)
Quarter: 2004Q3

REPORT INFORMATION
  Report Type: 
  Country: None (occurrence: None)
  Receive Date: 20040726
  Receipt Date: 20040428
  Transmission Date: 20050211
  Serious: No
  Sender: FDA-Public Use
  Company Number: USA040466265

PATIENT
  Sex: Female
  Weight: 59 kg

DRUGS (4)
  1. FORTEO [Suspect]
     Dates: start: 20040201
  2. BEXTRA [Concomitant]
  3. ACTONEL [Concomitant]
  4. TEGRETOL [Concomitant]

REACTIONS (4)
  - ABDOMINAL DISTENSION [None]
  - MUSCLE CRAMP [None]
  - OEDEMA PERIPHERAL [None]
  - WEIGHT INCREASED [None]
